FAERS Safety Report 8917987 (Version 3)
Quarter: 2013Q2

REPORT INFORMATION
  Report Type: Spontaneous
  Country: US (occurrence: US)
  Receive Date: 20121120
  Receipt Date: 20130517
  Transmission Date: 20140414
  Serious: Yes (Hospitalization, Other)
  Sender: FDA-Public Use
  Company Number: US-009507513-1211USA006933

PATIENT
  Age: 69 Year
  Sex: Female
  Weight: 56.69 kg

DRUGS (2)
  1. EMEND [Suspect]
     Indication: PROPHYLAXIS OF NAUSEA AND VOMITING
     Dosage: UNK UNK, ONCE
     Route: 042
     Dates: start: 20121113, end: 20121113
  2. EMEND [Suspect]
     Dosage: UNK UNK, ONCE
     Route: 042
     Dates: start: 2012, end: 2012

REACTIONS (6)
  - Oxygen saturation decreased [Recovered/Resolved]
  - Chest discomfort [Recovered/Resolved]
  - Back pain [Recovered/Resolved]
  - Dyspnoea [Recovered/Resolved]
  - Chest pain [Recovered/Resolved]
  - Panic reaction [Recovered/Resolved]
